FAERS Safety Report 4414756-5 (Version None)
Quarter: 2004Q3

REPORT INFORMATION
  Report Type: 
  Country: None (occurrence: None)
  Receive Date: 20040804
  Receipt Date: 20030822
  Transmission Date: 20050211
  Serious: No
  Sender: FDA-Public Use
  Company Number: US-BRISTOL-MYERS SQUIBB COMPANY-12363677

PATIENT
  Age: 77 Year
  Sex: Female
  Weight: 71 kg

DRUGS (11)
  1. GLUCOVANCE [Suspect]
     Indication: DIABETES MELLITUS NON-INSULIN-DEPENDENT
     Route: 048
     Dates: start: 20030820
  2. AZULFIDINE [Concomitant]
  3. LIPITOR [Concomitant]
  4. ZETIA [Concomitant]
  5. TENORMIN [Concomitant]
  6. SYNTHROID [Concomitant]
  7. FOSAMAX [Concomitant]
  8. CALCIUM [Concomitant]
  9. ALTACE [Concomitant]
  10. MULTI-VITAMIN [Concomitant]
  11. TYLENOL [Concomitant]

REACTIONS (1)
  - TINNITUS [None]
